FAERS Safety Report 6280624-X (Version None)
Quarter: 2009Q3

REPORT INFORMATION
  Report Type: 
  Country: None (occurrence: None)
  Receive Date: 20090724
  Receipt Date: 20081017
  Transmission Date: 20100115
  Serious: No
  Sender: FDA-Public Use
  Company Number: A0752529A

PATIENT
  Age: 54 Year
  Sex: Female

DRUGS (6)
  1. AVANDIA [Suspect]
     Route: 048
     Dates: start: 20040101
  2. LASIX [Concomitant]
     Dosage: 40MG PER DAY
  3. LOVASTATIN [Concomitant]
  4. EXFORGE [Concomitant]
  5. METFORMIN HCL [Concomitant]
  6. GLIMEPIRIDE [Concomitant]

REACTIONS (1)
  - OEDEMA PERIPHERAL [None]
